FAERS Safety Report 5317315-5 (Version None)
Quarter: 2007Q2

REPORT INFORMATION
  Report Type: 
  Country: None (occurrence: None)
  Receive Date: 20070504
  Receipt Date: 20070424
  Transmission Date: 20071010
  Serious: Yes (Hospitalization)
  Sender: FDA-Public Use
  Company Number: GB-PFIZER INC-2007033832

PATIENT
  Age: 72 Year
  Sex: Male

DRUGS (10)
  1. ATORVASTATIN CALCIUM [Suspect]
     Indication: BLOOD CHOLESTEROL INCREASED
     Dates: start: 20060210, end: 20060318
  2. CYCLOSPORINE [Suspect]
     Indication: LIVER TRANSPLANT
     Dates: start: 19930101, end: 20060407
  3. ALLOPURINOL [Concomitant]
     Route: 048
  4. ACETYLSALICYLIC ACID SRT [Concomitant]
     Route: 048
  5. CLOPIDOGREL [Concomitant]
     Route: 048
  6. GOSERELIN [Concomitant]
     Route: 058
  7. LOSARTAN POSTASSIUM [Concomitant]
  8. NICORANDIL [Concomitant]
  9. OLMESARTAN MEDOXOMIL [Concomitant]
     Route: 048
     Dates: start: 20060308, end: 20060319
  10. PRAVASTATIN [Concomitant]
     Route: 048
     Dates: start: 20050901, end: 20060201

REACTIONS (8)
  - ANOREXIA [None]
  - CHROMATURIA [None]
  - CONSTIPATION [None]
  - DRUG LEVEL BELOW THERAPEUTIC [None]
  - FAECES DISCOLOURED [None]
  - LIVER FUNCTION TEST ABNORMAL [None]
  - PRURITUS [None]
  - TRANSPLANT REJECTION [None]
